FAERS Safety Report 9732752 (Version 1)
Quarter: 2013Q4

REPORT INFORMATION
  Report Type: Spontaneous
  Country: FR (occurrence: FR)
  Receive Date: 20131204
  Receipt Date: 20131204
  Transmission Date: 20140711
  Serious: Yes (Hospitalization)
  Sender: FDA-Public Use
  Company Number: FR-GLAXOSMITHKLINE-B0948146A

PATIENT
  Age: 62 Year
  Sex: Male

DRUGS (9)
  1. WELLVONE [Suspect]
     Indication: PNEUMOCYSTIS JIROVECII PNEUMONIA
     Dosage: 1UNIT TWICE PER DAY
     Route: 048
     Dates: start: 20130921, end: 20130928
  2. BACTRIM FORTE [Suspect]
     Indication: PNEUMOCYSTIS JIROVECII PNEUMONIA
     Dosage: 1TAB SIX TIMES PER DAY
     Route: 048
     Dates: start: 20130828, end: 20130920
  3. ALPRAZOLAM [Concomitant]
     Dosage: .5MG TWICE PER DAY
  4. AMLOR [Concomitant]
     Dosage: 10MG IN THE MORNING
  5. SULFARLEM [Concomitant]
     Dosage: 1TAB THREE TIMES PER DAY
     Route: 048
  6. SEROPLEX [Concomitant]
     Dosage: 10MG AT NIGHT
  7. CORTANCYL [Concomitant]
     Dosage: 4TAB PER DAY
     Route: 048
     Dates: start: 20130828, end: 20130925
  8. INEXIUM [Concomitant]
     Dates: start: 20130901, end: 20130927
  9. ACICLOVIR [Concomitant]
     Dates: start: 20130920, end: 20130927

REACTIONS (1)
  - Pancytopenia [Recovering/Resolving]
